FAERS Safety Report 9647419 (Version 2)
Quarter: 2014Q1

REPORT INFORMATION
  Report Type: Report from Study
  Country: DE (occurrence: DE)
  Receive Date: 20131028
  Receipt Date: 20140212
  Transmission Date: 20141002
  Serious: Yes (Hospitalization)
  Sender: FDA-Public Use
  Company Number: DE-ROCHE-1293656

PATIENT
  Age: 64 Year
  Sex: Female
  Weight: 55 kg

DRUGS (5)
  1. BEVACIZUMAB [Suspect]
     Indication: OVARIAN CANCER
     Dosage: DATE OF LAST DOSE PRIOR TO SAE: 01/OCT/2013
     Route: 042
     Dates: start: 20130416
  2. CARBOPLATIN [Suspect]
     Indication: OVARIAN CANCER
     Dosage: DATE OF LAST DOSE PRIOR TO SAE: 30/JUL/2012
     Route: 042
     Dates: start: 20130416
  3. PACLITAXEL [Suspect]
     Indication: OVARIAN CANCER
     Dosage: DATE OF LAST DOSE PRIOR TO SAE: 30/JUL/2012
     Route: 042
     Dates: start: 20130416
  4. INNOHEP [Concomitant]
     Dosage: 10000 IE (0-0-1)
     Route: 058
  5. PANTOZOL (GERMANY) [Concomitant]
     Dosage: (0-0-1)
     Route: 065

REACTIONS (1)
  - Monoparesis [Recovered/Resolved]
